FAERS Safety Report 12448674 (Version 1)
Quarter: 2016Q2

REPORT INFORMATION
  Report Type: Spontaneous
  Country: US (occurrence: US)
  Receive Date: 20160608
  Receipt Date: 20160608
  Transmission Date: 20160815
  Serious: Yes (Hospitalization, Other)
  Sender: FDA-Public Use
  Company Number: US-BAYER-2016-109288

PATIENT
  Age: 67 Year
  Sex: Male
  Weight: 104.31 kg

DRUGS (4)
  1. BAYER LOW DOSE [Suspect]
     Active Substance: ASPIRIN
     Dosage: 1 DF, QD
  2. ONE A DAY MENS [VIT C,B5,D3,B12,B9,B3,B6,RETINOL,B2,B1 HCL,VIT E] [Concomitant]
     Dosage: 1 DF, QD
     Route: 048
  3. BAYER LOW DOSE [Suspect]
     Active Substance: ASPIRIN
     Dosage: 1 DF, BID
     Route: 048
  4. METFORMIN [Concomitant]
     Active Substance: METFORMIN HYDROCHLORIDE

REACTIONS (3)
  - Contusion [None]
  - Product use issue [None]
  - Carotid artery occlusion [None]

NARRATIVE: CASE EVENT DATE: 20160212
